FAERS Safety Report 4620937-8 (Version None)
Quarter: 2005Q1

REPORT INFORMATION
  Report Type: 
  Country: None (occurrence: None)
  Receive Date: 20050328
  Receipt Date: 20050315
  Transmission Date: 20050727
  Serious: Yes (Hospitalization)
  Sender: FDA-Public Use
  Company Number: DE-ABBOTT-05P-062-0294222-00

PATIENT
  Sex: Female
  Weight: 89 kg

DRUGS (1)
  1. REDUCTIL 10MG [Suspect]
     Indication: OBESITY
     Route: 048
     Dates: start: 20050222, end: 20050305

REACTIONS (4)
  - HALLUCINATION [None]
  - PSYCHOTIC DISORDER [None]
  - RESTLESSNESS [None]
  - UNEVALUABLE EVENT [None]
